FAERS Safety Report 5207540-6 (Version None)
Quarter: 2006Q4

REPORT INFORMATION
  Report Type: 
  Country: None (occurrence: None)
  Receive Date: 20061030
  Receipt Date: 20060809
  Transmission Date: 20070319
  Serious: No
  Sender: FDA-Public Use
  Company Number: 255982

PATIENT
  Age: 63 Year
  Sex: Female
  Weight: 97.5 kg

DRUGS (1)
  1. LEVEMIR [Suspect]
     Indication: DIABETES MELLITUS INSULIN-DEPENDENT
     Dosage: 110 IU,QD, SUBCUTANEOUS
     Route: 058
     Dates: start: 20060406

REACTIONS (2)
  - BLOOD GLUCOSE DECREASED [None]
  - HYPERHIDROSIS [None]
